FAERS Safety Report 4269242-2 (Version None)
Quarter: 2004Q1

REPORT INFORMATION
  Report Type: 
  Country: None (occurrence: None)
  Receive Date: 20040112
  Receipt Date: 20040112
  Transmission Date: 20041129
  Serious: Yes (Hospitalization)
  Sender: FDA-Public Use
  Company Number: None

PATIENT
  Age: 22 Year
  Sex: Female
  Weight: 63.5036 kg

DRUGS (2)
  1. ORLAAM [Suspect]
     Indication: DRUG ABUSER
     Dosage: M45 W45 F50
     Dates: start: 19990201, end: 20031027
  2. METHADONE HCL [Suspect]
     Indication: DRUG ABUSER
     Dosage: 40-50 MG
     Dates: start: 20031028

REACTIONS (4)
  - CHEST PAIN [None]
  - PSYCHOTIC DISORDER [None]
  - SLEEP DISORDER [None]
  - VOMITING [None]
